FAERS Safety Report 6568061-1 (Version None)
Quarter: 2010Q1

REPORT INFORMATION
  Report Type: 
  Country: None (occurrence: None)
  Receive Date: 20100129
  Receipt Date: 20100113
  Transmission Date: 20100710
  Serious: Yes (Other)
  Sender: FDA-Public Use
  Company Number: 2009AC000416

PATIENT
  Age: 51 Year
  Sex: Male

DRUGS (28)
  1. DIGOXIN [Suspect]
     Dosage: 250 MCG;QD;PO
     Route: 048
     Dates: start: 20021101
  2. COUMADIN [Concomitant]
  3. LASIX [Concomitant]
  4. SIMVASTATIN [Concomitant]
  5. TOPROL-XL [Concomitant]
  6. VERAPAMIL [Concomitant]
  7. NAPROXEN [Concomitant]
  8. ALPRAZOLAM [Concomitant]
  9. DOXYCYCLINE [Concomitant]
  10. TRIMOX [Concomitant]
  11. METOPROLOL TARTRATE [Concomitant]
  12. CLARITIN [Concomitant]
  13. MECLIZINE [Concomitant]
  14. CARDIZEM [Concomitant]
  15. PORPAFENONE [Concomitant]
  16. DILTIAZIDE [Concomitant]
  17. BETAPACE [Concomitant]
  18. PROMETHAZINE [Concomitant]
  19. CEPHALEXIN [Concomitant]
  20. BISACODYL [Concomitant]
  21. COLYTE [Concomitant]
  22. AMOXICILLIN [Concomitant]
  23. ALBUTEROL [Concomitant]
  24. LEVAQUIN [Concomitant]
  25. PREDNISONE [Concomitant]
  26. RYTHMOL [Concomitant]
  27. TIKOSYN [Concomitant]
  28. LISINOPRIL [Concomitant]

REACTIONS (9)
  - ANXIETY [None]
  - ATRIAL FIBRILLATION [None]
  - ATRIAL FLUTTER [None]
  - ECONOMIC PROBLEM [None]
  - FATIGUE [None]
  - HYPERTROPHIC CARDIOMYOPATHY [None]
  - INJURY [None]
  - OEDEMA PERIPHERAL [None]
  - PAIN [None]
